FAERS Safety Report 14689556 (Version 2)
Quarter: 2018Q2

REPORT INFORMATION
  Report Type: Report from Study
  Country: CN (occurrence: CN)
  Receive Date: 20180328
  Receipt Date: 20180403
  Transmission Date: 20180711
  Serious: Yes (Death)
  Sender: FDA-Public Use
  Company Number: PHHY2018CN054823

PATIENT
  Sex: Male

DRUGS (1)
  1. EXJADE [Suspect]
     Active Substance: DEFERASIROX
     Indication: MYELODYSPLASTIC SYNDROME
     Dosage: 1540 MG, QD (20 MG/KG)
     Route: 048
     Dates: start: 20171227, end: 201803

REACTIONS (2)
  - Infection in an immunocompromised host [Fatal]
  - Venoocclusive liver disease [Fatal]
